FAERS Safety Report 8275440-3 (Version None)
Quarter: 2012Q2

REPORT INFORMATION
  Report Type: 
  Country: None (occurrence: None)
  Receive Date: 20120411
  Receipt Date: 20120402
  Transmission Date: 20120825
  Serious: Yes (Disabling)
  Sender: FDA-Public Use
  Company Number: IT-BAXTER-2012BH007357

PATIENT
  Sex: Female

DRUGS (7)
  1. TRIMETON                           /00072502/ [Concomitant]
     Route: 048
  2. SOLU-MEDROL [Concomitant]
     Route: 042
  3. MABTHERA [Suspect]
     Indication: B-CELL LYMPHOMA
     Route: 042
     Dates: start: 20100416, end: 20111213
  4. LAMIVUDINE [Concomitant]
     Route: 048
  5. CYCLOPHOSPHAMIDE [Suspect]
     Indication: NODAL MARGINAL ZONE B-CELL LYMPHOMA
     Route: 042
     Dates: start: 20111018, end: 20120111
  6. LEVOFLOXACIN [Concomitant]
     Route: 048
  7. NAVOBAN [Concomitant]
     Route: 042

REACTIONS (3)
  - HYPOACUSIS [None]
  - DEAFNESS [None]
  - EAR PAIN [None]
